FAERS Safety Report 16144787 (Version 1)
Quarter: 2019Q2

REPORT INFORMATION
  Report Type: Spontaneous
  Country: US (occurrence: US)
  Receive Date: 20190402
  Receipt Date: 20190402
  Transmission Date: 20190711
  Serious: No
  Sender: FDA-Public Use
  Company Number: US-LUPIN PHARMACEUTICALS INC.-2018-07420

PATIENT
  Sex: Female

DRUGS (1)
  1. SERTRALINE HYDROCHLORIDE TABLETS [Suspect]
     Active Substance: SERTRALINE HYDROCHLORIDE
     Indication: PRODUCT USED FOR UNKNOWN INDICATION
     Dosage: UNK
     Route: 065
     Dates: end: 201802

REACTIONS (6)
  - Feeling abnormal [Unknown]
  - Anhedonia [Unknown]
  - Depersonalisation/derealisation disorder [Unknown]
  - Fatigue [Unknown]
  - Somnolence [Unknown]
  - Influenza like illness [Unknown]
